FAERS Safety Report 24757419 (Version 1)
Quarter: 2024Q4

REPORT INFORMATION
  Report Type: Spontaneous
  Country: US (occurrence: US)
  Receive Date: 20241220
  Receipt Date: 20241220
  Transmission Date: 20250115
  Serious: No
  Sender: CSL BEHRING
  Company Number: US-BEH-2024174024

PATIENT
  Sex: Female

DRUGS (22)
  1. HIZENTRA [Suspect]
     Active Substance: HUMAN IMMUNOGLOBULIN G
     Indication: Immunodeficiency common variable
     Route: 058
  2. HIZENTRA [Suspect]
     Active Substance: HUMAN IMMUNOGLOBULIN G
     Indication: Hypersensitivity
  3. ATORVASTATIN [Concomitant]
     Active Substance: ATORVASTATIN
  4. ZYRTEC [Concomitant]
     Active Substance: CETIRIZINE HYDROCHLORIDE
  5. FUROSEMIDE [Concomitant]
     Active Substance: FUROSEMIDE
  6. CEFDINIR [Concomitant]
     Active Substance: CEFDINIR
  7. METHYLPREDNISOLONE [Concomitant]
     Active Substance: METHYLPREDNISOLONE
  8. LORATADINE [Concomitant]
     Active Substance: LORATADINE
  9. CIPROFLOXACIN HYDROCHLORIDE [Concomitant]
     Active Substance: CIPROFLOXACIN HYDROCHLORIDE
  10. VITAMIN B12 [Concomitant]
     Active Substance: CYANOCOBALAMIN
  11. VITAMIN D [Concomitant]
     Active Substance: VITAMIN D NOS
  12. DILTIAZEM [Concomitant]
     Active Substance: DILTIAZEM
  13. SIMVASTATIN [Concomitant]
     Active Substance: SIMVASTATIN
  14. NAPROSYN [Concomitant]
     Active Substance: NAPROXEN
  15. ALBUTEROL [Concomitant]
     Active Substance: ALBUTEROL
  16. IPRATROPIUM [Concomitant]
     Active Substance: IPRATROPIUM
  17. PREDNISONE [Concomitant]
     Active Substance: PREDNISONE
  18. TRELEGY ELLIPTA [Concomitant]
     Active Substance: FLUTICASONE FUROATE\UMECLIDINIUM BROMIDE\VILANTEROL TRIFENATATE
  19. VENTOLIN HFA [Concomitant]
     Active Substance: ALBUTEROL SULFATE
  20. THIAMINE HYDROCHLORIDE [Concomitant]
     Active Substance: THIAMINE HYDROCHLORIDE
  21. VITAMIN C [Concomitant]
     Active Substance: ASCORBIC ACID
  22. BUDESONIDE [Concomitant]
     Active Substance: BUDESONIDE

REACTIONS (6)
  - Infusion site swelling [Not Recovered/Not Resolved]
  - Infusion site discomfort [Not Recovered/Not Resolved]
  - Abdominal distension [Unknown]
  - Depression [Unknown]
  - Initial insomnia [Unknown]
  - Wrong technique in product usage process [Unknown]
